FAERS Safety Report 4306972-8 (Version None)
Quarter: 2004Q1

REPORT INFORMATION
  Report Type: 
  Country: None (occurrence: None)
  Receive Date: 20040225
  Receipt Date: 20040220
  Transmission Date: 20041129
  Serious: Yes (Disabling, Congenital Anomaly)
  Sender: FDA-Public Use
  Company Number: 2004-02-1356

PATIENT
  Age: 1 Day
  Sex: Male

DRUGS (2)
  1. AERIUS (DESLORATADINE) TABLETS    LIKE CLARINEX [Suspect]
     Dosage: 5 MG QD ORAL
     Route: 048
     Dates: start: 20020322, end: 20020327
  2. ELAVIL [Suspect]
     Dosage: 10 MG QD ORAL
     Route: 048

REACTIONS (3)
  - CRYPTORCHISM [None]
  - HERNIA CONGENITAL [None]
  - MATERNAL DRUGS AFFECTING FOETUS [None]
